FAERS Safety Report 19577681 (Version 2)
Quarter: 2021Q3

REPORT INFORMATION
  Report Type: Report from Study
  Country: CZ (occurrence: CZ)
  Receive Date: 20210719
  Receipt Date: 20210817
  Transmission Date: 20211014
  Serious: Yes (Hospitalization)
  Sender: FDA-Public Use
  Company Number: CZ-DSJP-DSJ-2021-122069

PATIENT
  Age: 65 Year
  Sex: Male

DRUGS (21)
  1. ZARZIO [Concomitant]
     Active Substance: FILGRASTIM
     Indication: NEUTROPENIA
     Route: 058
     Dates: start: 20210622, end: 20210622
  2. AKYNZEO [Concomitant]
     Active Substance: NETUPITANT\PALONOSETRON HYDROCHLORIDE
     Indication: CHEMOTHERAPY SIDE EFFECT PROPHYLAXIS
     Dosage: 1 DF
     Route: 048
     Dates: start: 20210629, end: 20210629
  3. TRASTUZUMAB DERUXTECAN. [Suspect]
     Active Substance: TRASTUZUMAB DERUXTECAN
     Indication: PANCREATIC CARCINOMA
     Dosage: 5.4 MG/KG, ONCE EVERY 3 WK
     Route: 042
     Dates: start: 20210608, end: 20210608
  4. ISOLYTE [Concomitant]
     Indication: VOMITING
     Dosage: 1000 ML
     Route: 042
     Dates: start: 20210613, end: 20210615
  5. ONDANSETRON [Concomitant]
     Active Substance: ONDANSETRON
     Indication: VOMITING
     Dosage: 8 MG
     Route: 042
     Dates: start: 20210608, end: 20210608
  6. NOVALGIN [Concomitant]
     Indication: PAIN
     Dosage: 500 MG
     Route: 042
     Dates: start: 20210612, end: 20210613
  7. NOVALGIN [Concomitant]
     Dosage: 500 MG
     Route: 042
     Dates: start: 20210615, end: 20210615
  8. FUROSEMID [Concomitant]
     Active Substance: FUROSEMIDE
     Indication: VOMITING
     Dosage: 20 MG
     Route: 042
     Dates: start: 20210615, end: 20210615
  9. DEXAMETHASONE. [Concomitant]
     Active Substance: DEXAMETHASONE
     Indication: VOMITING
     Route: 042
     Dates: start: 20210608, end: 20210608
  10. DIAZEPAM. [Concomitant]
     Active Substance: DIAZEPAM
     Indication: VOMITING
     Dosage: 5 MG
     Route: 048
     Dates: start: 20210613, end: 20210614
  11. DUROGESIS [Concomitant]
     Indication: PAIN
     Dosage: 75.0 UG/H  ONCE/SINGLE ADMINISTRATION
     Route: 042
     Dates: start: 20210612, end: 20210612
  12. DEGAN [Concomitant]
     Active Substance: METOCLOPRAMIDE HYDROCHLORIDE
     Dosage: 10 MG
     Route: 042
     Dates: start: 20210615, end: 20210615
  13. ALOPURINOL [Concomitant]
     Active Substance: ALLOPURINOL
     Indication: HYPERURICAEMIA
     Dosage: 100 MG
     Route: 048
     Dates: start: 202007
  14. ZARZIO [Concomitant]
     Active Substance: FILGRASTIM
     Route: 058
  15. ZOFRAN [Concomitant]
     Active Substance: ONDANSETRON HYDROCHLORIDE
     Indication: VOMITING
     Dosage: 8 MG
     Route: 042
     Dates: start: 20210612, end: 20210613
  16. KREON [Concomitant]
     Active Substance: PANCRELIPASE
     Indication: PANCREATIC CARCINOMA
     Route: 048
     Dates: start: 201904
  17. DEGAN [Concomitant]
     Active Substance: METOCLOPRAMIDE HYDROCHLORIDE
     Indication: VOMITING
     Dosage: 10 MG
     Route: 042
     Dates: start: 20210614, end: 20210614
  18. DEXAMETHASONE. [Concomitant]
     Active Substance: DEXAMETHASONE
     Indication: VOMITING
     Route: 042
     Dates: start: 20210612, end: 20210615
  19. NEURONTIN [Concomitant]
     Active Substance: GABAPENTIN
     Indication: NEUROPATHY PERIPHERAL
     Dosage: 300 MG
     Route: 048
     Dates: start: 202007
  20. TRASTUZUMAB DERUXTECAN. [Suspect]
     Active Substance: TRASTUZUMAB DERUXTECAN
     Dosage: 5.4 MG/KG, ONCE EVERY 3 WK
     Route: 042
     Dates: start: 20210629, end: 20210629
  21. DUROGESIC [Concomitant]
     Active Substance: FENTANYL
     Indication: PAIN
     Dosage: 75.0 UG/H  ONCE/SINGLE ADMINISTRATION
     Route: 042
     Dates: start: 20210615, end: 20210615

REACTIONS (1)
  - General physical health deterioration [Recovered/Resolved]

NARRATIVE: CASE EVENT DATE: 20210704
